FAERS Safety Report 6039183-9 (Version None)
Quarter: 2009Q1

REPORT INFORMATION
  Report Type: 
  Country: None (occurrence: None)
  Receive Date: 20090115
  Receipt Date: 20090105
  Transmission Date: 20090719
  Serious: Yes (Hospitalization)
  Sender: FDA-Public Use
  Company Number: US-CELGENEUS-056-21880-09010682

PATIENT
  Age: 65 Year
  Sex: Female

DRUGS (4)
  1. REVLIMID [Suspect]
     Indication: MULTIPLE MYELOMA
     Route: 048
     Dates: start: 20081229, end: 20081229
  2. VORINOSTAT [Suspect]
     Indication: MULTIPLE MYELOMA
     Route: 048
     Dates: start: 20081229, end: 20090101
  3. VORINOSTAT [Suspect]
     Route: 048
     Dates: start: 20090105
  4. DEXAMETHASONE TAB [Suspect]
     Indication: MULTIPLE MYELOMA
     Route: 065

REACTIONS (2)
  - DIARRHOEA [None]
  - INCORRECT DOSE ADMINISTERED [None]
